FAERS Safety Report 9382925 (Version 2)
Quarter: 2013Q3

REPORT INFORMATION
  Report Type: Spontaneous
  Country: BR (occurrence: BR)
  Receive Date: 20130703
  Receipt Date: 20130706
  Transmission Date: 20140515
  Serious: Yes (Death, Life-Threatening, Hospitalization)
  Sender: FDA-Public Use
  Company Number: BR-B.I. PHARMACEUTICALS,INC./RIDGEFIELD-2013-BR-00765BR

PATIENT
  Age: 94 Year
  Sex: Male

DRUGS (5)
  1. SECOTEX [Suspect]
     Indication: BENIGN PROSTATIC HYPERPLASIA
     Dosage: 0.4 MG
     Route: 048
     Dates: start: 2003, end: 20130618
  2. ENALAPRIL [Concomitant]
     Indication: HYPERTENSION
     Dates: end: 20130618
  3. HYDROCHLOROTHIAZIDE [Concomitant]
     Indication: HYPERTENSION
     Dates: end: 20130618
  4. FUROSEMIDE [Concomitant]
     Indication: RENAL FAILURE CHRONIC
     Dates: start: 201301
  5. ALPRAZOLAM [Concomitant]
     Indication: INSOMNIA
     Dosage: 0.25 MG

REACTIONS (5)
  - Multi-organ failure [Fatal]
  - Sepsis [Fatal]
  - Coma [Not Recovered/Not Resolved]
  - Renal failure chronic [Not Recovered/Not Resolved]
  - Renal failure chronic [Unknown]
